FAERS Safety Report 6930021-6 (Version None)
Quarter: 2010Q3

REPORT INFORMATION
  Report Type: 
  Country: None (occurrence: None)
  Receive Date: 20100818
  Receipt Date: 20100809
  Transmission Date: 20110219
  Serious: Yes (Hospitalization)
  Sender: FDA-Public Use
  Company Number: US-ABBOTT-10P-163-0663096-00

PATIENT
  Sex: Female
  Weight: 84.4 kg

DRUGS (5)
  1. HUMIRA [Suspect]
     Indication: COLITIS ULCERATIVE
     Dates: start: 20100720, end: 20100801
  2. HUMIRA [Suspect]
     Dates: start: 20100801
  3. MERCAPTOPURINE [Concomitant]
     Indication: COLITIS ULCERATIVE
     Dates: start: 20100501
  4. COLAZAL [Concomitant]
     Indication: COLITIS ULCERATIVE
     Dosage: 3 CAP 3XPER DAY
  5. PREDNISONE [Concomitant]
     Indication: COLITIS ULCERATIVE

REACTIONS (5)
  - COLITIS ULCERATIVE [None]
  - DIARRHOEA [None]
  - HAEMATOCHEZIA [None]
  - HAEMOGLOBIN DECREASED [None]
  - VOMITING [None]
